FAERS Safety Report 4784934-4 (Version None)
Quarter: 2005Q3

REPORT INFORMATION
  Report Type: 
  Country: None (occurrence: None)
  Receive Date: 20050930
  Receipt Date: 20050921
  Transmission Date: 20060218
  Serious: Yes (Hospitalization)
  Sender: FDA-Public Use
  Company Number: PHBS2005BR14016

PATIENT
  Age: 18 Year
  Sex: Female

DRUGS (1)
  1. METHERGINE [Suspect]
     Indication: ABORTION INDUCED
     Dosage: 0.85 MG, BID
     Route: 048

REACTIONS (7)
  - ABDOMINAL PAIN [None]
  - ABORTION [None]
  - ABORTION INDUCED [None]
  - DIZZINESS [None]
  - DRUG EXPOSURE DURING PREGNANCY [None]
  - DRUG EXPOSURE VIA BREAST MILK [None]
  - HAEMORRHAGE [None]
